FAERS Safety Report 18432963 (Version 2)
Quarter: 2020Q4

REPORT INFORMATION
  Report Type: Spontaneous
  Country: US (occurrence: US)
  Receive Date: 20201027
  Receipt Date: 20201113
  Transmission Date: 20210114
  Serious: No
  Sender: FDA-Public Use
  Company Number: US-PFIZER INC-2016456648

PATIENT
  Age: 80 Year
  Sex: Male

DRUGS (20)
  1. MEDROL [Suspect]
     Active Substance: METHYLPREDNISOLONE
     Dosage: UNK(4 MG TABLETS TAKE TABLETS PER PACKAGE INSTRUCTION)
  2. ARICEPT [Suspect]
     Active Substance: DONEPEZIL HYDROCHLORIDE
     Dosage: 10 MG, DAILY (TAKE 1 TABLET  BY MOUTH EVERYDAY)
     Route: 048
  3. ZOLOFT [Suspect]
     Active Substance: SERTRALINE HYDROCHLORIDE
     Dosage: 50 MG, 1X/DAY (TAKE 1 TABLET BY MOUTH EVERYDAY)
     Route: 048
  4. DONEPEZIL. [Concomitant]
     Active Substance: DONEPEZIL
     Dosage: 10 MG, 1X/DAY
     Route: 048
  5. FLAXSEED [Concomitant]
     Active Substance: FLAX SEED
     Dosage: 1000 MG, DAILY (TAKE 1 TAB BY MOUTH DAILY)
     Route: 048
  6. NORCO [Concomitant]
     Active Substance: ACETAMINOPHEN\HYDROCODONE BITARTRATE
     Dosage: UNK, AS NEEDED (TAKE 1 TAB BY MOUTH EVERY 4(FOUR) HOURS AS NEEDED)
     Route: 048
  7. MOBIC [Concomitant]
     Active Substance: MELOXICAM
     Indication: INFLAMMATION
     Dosage: 15 MG, AS NEEDED (TAKE 1 TABLET BY MOUTH DAILY AS NEEDED )
     Route: 048
  8. PERCOCET [Concomitant]
     Active Substance: ACETAMINOPHEN\OXYCODONE HYDROCHLORIDE
     Indication: PAIN
     Dosage: UNK, AS NEEDED(1/2 TO ONE Q 6 HOURS PRN(AS NEEDED)
  9. REQUIP [Concomitant]
     Active Substance: ROPINIROLE HYDROCHLORIDE
     Dosage: 0.5 MG (TAKE 1 TO 2 TABLETS BY MOUTH EVERY NIGHT AT BEDTIME)
     Route: 048
  10. VITAMIN B COMPLEX WITH C [Concomitant]
     Active Substance: ASCORBIC ACID\CALCIUM PANTOTHENATE\CYANOCOBALAMIN\NIACINAMIDE\PYRIDOXINE HYDROCHLORIDE\RIBOFLAVIN\THIAMINE MONONITRATE
     Dosage: 1 DF, DAILY
     Route: 048
  11. VITAMIN E [DL-ALPHA TOCOPHERYL ACETATE] [Concomitant]
     Dosage: 400 IU, DAILY (TAKE 400 UNITS BY MOUTH DAILY)
     Route: 048
  12. DIAZEPAM. [Concomitant]
     Active Substance: DIAZEPAM
     Indication: MUSCLE SPASMS
     Dosage: 10 MG, AS NEEDED (TAKE 1 TO 2 TABLETS BY MOUTH EVERY NIGHT AT BEDTIME)
     Route: 048
  13. DIAZEPAM. [Concomitant]
     Active Substance: DIAZEPAM
     Dosage: 5 MG, AS NEEDED (TAKE 1 TAB BY MOUTH EVERY 6 (SIX) HOURS AS NEEDED)
     Route: 048
  14. LYRICA [Suspect]
     Active Substance: PREGABALIN
     Dosage: 75 MG, 2X/DAY (TAKE 1 CAP BY MOUTH 2 (TWO) TIMES DAILY)
     Route: 048
  15. FLEXERIL [Concomitant]
     Active Substance: CYCLOBENZAPRINE HYDROCHLORIDE
     Indication: MUSCLE SPASMS
     Dosage: 10 MG, 3X/DAY (1 TAB BY MOUTH 3 (THREE) TIMES DAILY AS NEEDED)
     Route: 048
  16. PRILOSEC [Concomitant]
     Active Substance: OMEPRAZOLE MAGNESIUM
     Dosage: 20 MG, 2X/DAY (TAKE 1 CAPSULE BY MOUTH TWICE DAILY)
     Route: 048
  17. FOLIC ACID DC [Concomitant]
     Dosage: 800 UG, DAILY (TAKE 1 TAB BY MOUTH DAILY)
     Route: 048
  18. PYRIDOXINE [Concomitant]
     Active Substance: PYRIDOXINE
     Dosage: 100 MG, DAILY (TAKE 100 MG BY MOUTH DAILY)
     Route: 048
  19. MEDROL [Concomitant]
     Active Substance: METHYLPREDNISOLONE
     Dosage: 4 MG (TAKE TABLETS PER PACKAGE INSTRUCTIONS)
  20. ZANAFLEX [Concomitant]
     Active Substance: TIZANIDINE HYDROCHLORIDE
     Dosage: 4 MG, 3X/DAY (TAKE 1 CAP BY MOUTH 3 (THREE) TIMES DAILY)
     Route: 048

REACTIONS (1)
  - Amnesia [Unknown]
